FAERS Safety Report 9254119 (Version 1)
Quarter: 2013Q2

REPORT INFORMATION
  Report Type: Spontaneous
  Country: JP (occurrence: JP)
  Receive Date: 20130425
  Receipt Date: 20130425
  Transmission Date: 20140414
  Serious: Yes (Other)
  Sender: FDA-Public Use
  Company Number: JP-ROXANE LABORATORIES, INC.-2013-RO-00536RO

PATIENT
  Age: 74 Year
  Sex: Female
  Weight: 54 kg

DRUGS (3)
  1. DEXAMETHASONE [Suspect]
     Indication: PLASMA CELL MYELOMA
  2. BORTEZOMIB [Suspect]
     Indication: PLASMA CELL MYELOMA
  3. BORTEZOMIB [Suspect]

REACTIONS (3)
  - Ileus paralytic [Recovered/Resolved]
  - Constipation [Not Recovered/Not Resolved]
  - Herpes zoster [Unknown]
